FAERS Safety Report 8564956 (Version 2)
Quarter: 2014Q1

REPORT INFORMATION
  Report Type: Report from Study
  Country: US (occurrence: US)
  Receive Date: 20120516
  Receipt Date: 20140321
  Transmission Date: 20141002
  Serious: Yes (Hospitalization, Other)
  Sender: FDA-Public Use
  Company Number: US-ALEXION-A201200272

PATIENT
  Sex: Female

DRUGS (1)
  1. SOLIRIS [Suspect]
     Indication: HAEMOLYTIC URAEMIC SYNDROME
     Dosage: UNK
     Route: 042

REACTIONS (16)
  - Haemodialysis [Unknown]
  - Plasmapheresis [Unknown]
  - Unevaluable event [Unknown]
  - Platelet count decreased [Unknown]
  - Blood pressure decreased [Unknown]
  - Scar [Unknown]
  - Blood creatinine abnormal [Unknown]
  - Drug ineffective [Unknown]
  - Catheter placement [Unknown]
  - Anaemia [Unknown]
  - Vomiting [Unknown]
  - Dizziness [Unknown]
  - Cough [Unknown]
  - Neck pain [Not Recovered/Not Resolved]
  - Anxiety [Unknown]
  - Fatigue [Unknown]
